FAERS Safety Report 15849664 (Version 3)
Quarter: 2019Q2

REPORT INFORMATION
  Report Type: Spontaneous
  Country: US (occurrence: US)
  Receive Date: 20190121
  Receipt Date: 20190417
  Transmission Date: 20190711
  Serious: Yes (Other)
  Sender: FDA-Public Use
  Company Number: US-AKORN PHARMACEUTICALS-2019AKN00084

PATIENT
  Age: 16 Year
  Sex: Female

DRUGS (3)
  1. MYORISAN [Suspect]
     Active Substance: ISOTRETINOIN
     Dosage: 40 MG, 2X/DAY; ALT. WITH EVERY DAY; AVERAGE DAILY DOSE OF 60 MG
     Dates: start: 20180501, end: 20181123
  2. MYORISAN [Suspect]
     Active Substance: ISOTRETINOIN
     Dosage: 40 MG, 1X/DAY; ALT. WITH TWICE DAILY; AVERAGE DAILY DOSE OF 60 MG
     Dates: start: 20180501, end: 20181123
  3. UNSPECIFIED BIRTH CONTROL PILLS [Concomitant]
     Active Substance: UNSPECIFIED INGREDIENT
     Dosage: UNK
     Dates: start: 201812

REACTIONS (5)
  - Blood triglycerides increased [Recovered/Resolved]
  - Exposure during pregnancy [Recovered/Resolved]
  - Vaginal haemorrhage [Unknown]
  - Abortion spontaneous [Recovered/Resolved]
  - Off label use [Recovered/Resolved]

NARRATIVE: CASE EVENT DATE: 2018
